FAERS Safety Report 25403872 (Version 1)
Quarter: 2025Q2

REPORT INFORMATION
  Report Type: Spontaneous
  Country: PL (occurrence: PL)
  Receive Date: 20250606
  Receipt Date: 20250606
  Transmission Date: 20250716
  Serious: Yes (Other)
  Sender: TEVA
  Company Number: None

PATIENT
  Age: 70 Year
  Sex: Female

DRUGS (6)
  1. METFORMIN [Suspect]
     Active Substance: METFORMIN HYDROCHLORIDE
     Indication: Diabetes mellitus
     Dosage: DOSE: 1 UNIT UNKNOWN; DURATION: FROM 2 WEEKS;?METFORMAX
     Route: 048
  2. ACARD [Concomitant]
     Indication: Product used for unknown indication
  3. PRIMACOR [Concomitant]
     Active Substance: MILRINONE LACTATE
     Indication: Product used for unknown indication
     Dosage: DOSE: 1 UNIT UNKNOWN; DURATION; FROM 6 MONTHS
     Route: 048
  4. NEBIVOLOL [Concomitant]
     Active Substance: NEBIVOLOL
     Indication: Hypertension
     Dosage: DOSE: 1 UNIT UNKNOWN; DURATION: FROM 6 MONTHS
     Route: 048
  5. INDAPAMIDE [Concomitant]
     Active Substance: INDAPAMIDE
     Indication: Product used for unknown indication
     Dosage: DOSE: 1 UNIT UNKNOWN; DURATION: FROM 6 MONTHS
     Route: 048
  6. REVIVAL [Concomitant]
     Indication: Product used for unknown indication
     Dosage: DOSE: 1 UNIT UNKNOWN; FROM: 6 MONTHS
     Route: 048

REACTIONS (6)
  - Asthenia [Not Recovered/Not Resolved]
  - Asthenia [Not Recovered/Not Resolved]
  - Cold sweat [Not Recovered/Not Resolved]
  - Diarrhoea [Not Recovered/Not Resolved]
  - Loss of consciousness [Not Recovered/Not Resolved]
  - Diarrhoea [Not Recovered/Not Resolved]

NARRATIVE: CASE EVENT DATE: 20211018
